FAERS Safety Report 22339472 (Version 1)
Quarter: 2023Q2

REPORT INFORMATION
  Report Type: Spontaneous
  Country: US (occurrence: US)
  Receive Date: 20230518
  Receipt Date: 20230518
  Transmission Date: 20230722
  Serious: No
  Sender: FDA-Public Use
  Company Number: US-SA-SAC20230518000330

PATIENT
  Sex: Female
  Weight: 75.4 kg

DRUGS (7)
  1. DUPIXENT [Suspect]
     Active Substance: DUPILUMAB
     Indication: Dermatitis atopic
     Dosage: 300 MG, QOW
     Route: 058
  2. OMEPRAZOLE [Concomitant]
     Active Substance: OMEPRAZOLE
  3. CALCIUM\CHOLECALCIFEROL [Concomitant]
     Active Substance: CALCIUM\CHOLECALCIFEROL
  4. LOSARTAN POTASSIUM [Concomitant]
     Active Substance: LOSARTAN POTASSIUM
  5. HUMALOG [Concomitant]
     Active Substance: INSULIN LISPRO
  6. VITAMINS NOS [Concomitant]
     Active Substance: VITAMINS
  7. ALLERTEC [CETIRIZINE] [Concomitant]

REACTIONS (2)
  - Skin burning sensation [Unknown]
  - Drug ineffective [Unknown]
